FAERS Safety Report 10045030 (Version 1)
Quarter: 2014Q1

REPORT INFORMATION
  Report Type: Spontaneous
  Country: CZ (occurrence: CZ)
  Receive Date: 20140328
  Receipt Date: 20140328
  Transmission Date: 20141002
  Serious: Yes (Death)
  Sender: FDA-Public Use
  Company Number: PHHY2014CZ034190

PATIENT
  Age: 61 Year
  Sex: Male

DRUGS (10)
  1. METHOTREXAT EBEWE [Suspect]
     Indication: PSORIATIC ARTHROPATHY
     Dosage: 15 MG, QW
     Route: 048
     Dates: end: 20140309
  2. SIMPONI [Suspect]
     Indication: PSORIATIC ARTHROPATHY
     Dosage: 50 MG, QMO
     Route: 058
     Dates: start: 20130410, end: 20140226
  3. MEDROL [Concomitant]
     Dosage: 8 MG, QD
  4. CALTRATE PLUS [Concomitant]
     Dosage: UNK, QD
  5. ALPHA D3 [Concomitant]
     Dosage: 1 UG, QD
  6. FOSAVANCE [Concomitant]
     Dosage: UNK, QW
  7. LOZAP [Concomitant]
     Dosage: UNK
  8. ACECOR [Concomitant]
     Dosage: 400 UKN
  9. APO-DICLO [Concomitant]
     Dosage: UNK
  10. APO-AMLODIPINE [Concomitant]
     Dosage: UNK

REACTIONS (2)
  - Cardio-respiratory arrest [Fatal]
  - Pancytopenia [Fatal]
